FAERS Safety Report 5641795-9 (Version None)
Quarter: 2008Q1

REPORT INFORMATION
  Report Type: 
  Country: None (occurrence: None)
  Receive Date: 20080131
  Receipt Date: 20071112
  Transmission Date: 20080703
  Serious: Yes (Hospitalization)
  Sender: FDA-Public Use
  Company Number: 163-21880-07110698

PATIENT
  Age: 43 Year
  Sex: Male
  Weight: 99.7913 kg

DRUGS (2)
  1. REVLIMID [Suspect]
     Indication: MULTIPLE MYELOMA
     Dosage: 5 MG, DAILY EVERYDAY ON DAYS 1-21, ORAL ; 5 MG, DAILY FOR 21 DAYS, ORAL
     Route: 048
     Dates: start: 20070915, end: 20071008
  2. REVLIMID [Suspect]
     Indication: MULTIPLE MYELOMA
     Dosage: 5 MG, DAILY EVERYDAY ON DAYS 1-21, ORAL ; 5 MG, DAILY FOR 21 DAYS, ORAL
     Route: 048
     Dates: start: 20071114

REACTIONS (1)
  - PNEUMONIA [None]
